FAERS Safety Report 6491254-9 (Version None)
Quarter: 2009Q4

REPORT INFORMATION
  Report Type: 
  Country: None (occurrence: None)
  Receive Date: 20091211
  Receipt Date: 20091202
  Transmission Date: 20100525
  Serious: Yes (Other)
  Sender: FDA-Public Use
  Company Number: PHHY2009IT53106

PATIENT
  Sex: Male

DRUGS (2)
  1. SANDIMMUNE [Suspect]
     Indication: RHEUMATOID ARTHRITIS
     Dosage: 150 MG, QD
     Route: 048
     Dates: start: 20080901, end: 20090901
  2. SANDIMMUNE [Suspect]
     Dosage: UNK

REACTIONS (3)
  - LEUKOCYTOCLASTIC VASCULITIS [None]
  - PETECHIAE [None]
  - PURPURA [None]
